FAERS Safety Report 6375611-7 (Version None)
Quarter: 2009Q3

REPORT INFORMATION
  Report Type: 
  Country: None (occurrence: None)
  Receive Date: 20090917
  Receipt Date: 20090917
  Transmission Date: 20100115
  Serious: Yes (Other)
  Sender: FDA-Public Use
  Company Number: None

PATIENT
  Age: 60 Year
  Sex: Male
  Weight: 96.1626 kg

DRUGS (4)
  1. CYMBALTA [Suspect]
     Indication: ANXIETY
     Dosage: 1 CAPSULE DAILY PO
     Route: 048
     Dates: start: 20080601, end: 20090824
  2. CYMBALTA [Suspect]
     Indication: DEPRESSION
     Dosage: 1 CAPSULE DAILY PO
     Route: 048
     Dates: start: 20080601, end: 20090824
  3. CYMBALTA [Suspect]
     Indication: ANXIETY
     Dosage: 1 CAPSULE DAILY PO
     Route: 048
     Dates: start: 20080420, end: 20090901
  4. CYMBALTA [Suspect]
     Indication: DEPRESSION
     Dosage: 1 CAPSULE DAILY PO
     Route: 048
     Dates: start: 20080420, end: 20090901

REACTIONS (11)
  - ABDOMINAL DISCOMFORT [None]
  - ASTHENIA [None]
  - CRYING [None]
  - DEPRESSION [None]
  - DISTURBANCE IN ATTENTION [None]
  - FATIGUE [None]
  - SLEEP DISORDER [None]
  - SUICIDAL IDEATION [None]
  - TINNITUS [None]
  - WEIGHT INCREASED [None]
  - WITHDRAWAL SYNDROME [None]
